FAERS Safety Report 7107775-1 (Version None)
Quarter: 2010Q4

REPORT INFORMATION
  Report Type: 
  Country: None (occurrence: None)
  Receive Date: 20101117
  Receipt Date: 20101103
  Transmission Date: 20110411
  Serious: Yes (Hospitalization)
  Sender: FDA-Public Use
  Company Number: PHHY2010US75014

PATIENT
  Sex: Male

DRUGS (4)
  1. DIOVAN [Suspect]
  2. TOPROL-XL [Suspect]
  3. ACCUPRIL [Suspect]
  4. DIURETICS [Suspect]

REACTIONS (6)
  - BLOOD CHOLESTEROL INCREASED [None]
  - CARDIAC DISORDER [None]
  - DIABETES MELLITUS [None]
  - HYPERTENSION [None]
  - PHLEBITIS [None]
  - POOR PERIPHERAL CIRCULATION [None]
